FAERS Safety Report 4956978-0 (Version None)
Quarter: 2006Q1

REPORT INFORMATION
  Report Type: 
  Country: None (occurrence: None)
  Receive Date: 20060323
  Receipt Date: 20060310
  Transmission Date: 20060701
  Serious: Yes (Other)
  Sender: FDA-Public Use
  Company Number: 2006035425

PATIENT
  Sex: Female

DRUGS (2)
  1. CELEBREX [Suspect]
     Indication: BIOPSY
     Dates: start: 20050701
  2. CELEBREX [Suspect]
     Indication: KNEE ARTHROPLASTY
     Dates: start: 20050701

REACTIONS (1)
  - KNEE ARTHROPLASTY [None]
